FAERS Safety Report 7301930-3 (Version None)
Quarter: 2011Q1

REPORT INFORMATION
  Report Type: 
  Country: None (occurrence: None)
  Receive Date: 20110218
  Receipt Date: 20110210
  Transmission Date: 20110831
  Serious: No
  Sender: FDA-Public Use
  Company Number: US-ROCHE-759643

PATIENT
  Sex: Male
  Weight: 87.5 kg

DRUGS (3)
  1. PROPOFOL [Concomitant]
  2. VASOPRESSIN [Concomitant]
  3. TAMIFLU [Suspect]
     Indication: INFLUENZA
     Dosage: STRENGTH: 15 MG/ML
     Route: 050
     Dates: start: 20110209

REACTIONS (2)
  - NO ADVERSE EVENT [None]
  - DRUG ADMINISTRATION ERROR [None]
